FAERS Safety Report 21241318 (Version 1)
Quarter: 2022Q3

REPORT INFORMATION
  Report Type: Spontaneous
  Country: NZ (occurrence: NZ)
  Receive Date: 20220823
  Receipt Date: 20220823
  Transmission Date: 20221026
  Serious: Yes (Disabling, Other)
  Sender: FDA-Public Use
  Company Number: NZ-ORGANON-O2207NZL001569

PATIENT
  Age: 52 Year
  Sex: Female
  Weight: 170 kg

DRUGS (1)
  1. ELOCON [Suspect]
     Active Substance: MOMETASONE FUROATE
     Indication: Dermatitis allergic
     Dosage: UNK, QD
     Dates: start: 20220517, end: 20220528

REACTIONS (10)
  - Burns second degree [Not Recovered/Not Resolved]
  - Cellulitis [Unknown]
  - Skin burning sensation [Not Recovered/Not Resolved]
  - Blister [Unknown]
  - Skin injury [Unknown]
  - Dermatitis [Unknown]
  - Infection [Unknown]
  - Rash [Unknown]
  - Drug ineffective [Unknown]
  - Incorrect dosage administered [Unknown]

NARRATIVE: CASE EVENT DATE: 20220101
